FAERS Safety Report 6864600-1 (Version None)
Quarter: 2010Q3

REPORT INFORMATION
  Report Type: 
  Country: None (occurrence: None)
  Receive Date: 20100721
  Receipt Date: 20080331
  Transmission Date: 20110219
  Serious: No
  Sender: FDA-Public Use
  Company Number: US-PFIZER INC-2008028831

PATIENT
  Sex: Male
  Weight: 97.7 kg

DRUGS (9)
  1. CHANTIX [Suspect]
     Indication: SMOKING CESSATION THERAPY
     Route: 048
     Dates: start: 20080301, end: 20080327
  2. HYDROCODONE [Concomitant]
  3. ACETYLSALICYLIC ACID [Concomitant]
  4. OMEPRAZOLE [Concomitant]
     Indication: ABDOMINAL PAIN UPPER
  5. GABAPENTIN [Concomitant]
  6. HYDROCHLOROTHIAZIDE [Concomitant]
  7. LISINOPRIL [Concomitant]
     Indication: HYPERTENSION
  8. ALL OTHER THERAPEUTIC PRODUCTS [Concomitant]
     Indication: ARTHROPATHY
  9. DRUG, UNSPECIFIED [Concomitant]
     Indication: BACK PAIN

REACTIONS (3)
  - ABDOMINAL PAIN UPPER [None]
  - NAUSEA [None]
  - VOMITING [None]
